FAERS Safety Report 5792980-7 (Version None)
Quarter: 2008Q2

REPORT INFORMATION
  Report Type: 
  Country: None (occurrence: None)
  Receive Date: 20080627
  Receipt Date: 20080617
  Transmission Date: 20081010
  Serious: Yes (Other)
  Sender: FDA-Public Use
  Company Number: US-WYE-H04547008

PATIENT
  Age: 53 Year
  Sex: Male
  Weight: 79 kg

DRUGS (5)
  1. TORISEL [Suspect]
     Indication: RENAL CELL CARCINOMA
     Route: 042
     Dates: start: 20080424, end: 20080605
  2. OXYCONTIN [Concomitant]
     Route: 065
  3. HYDROCHLOROTHIAZIDE [Concomitant]
  4. OXYCODONE HCL [Concomitant]
  5. PROCARDIA [Concomitant]
     Dosage: UNKNOWN
     Route: 065

REACTIONS (3)
  - ORAL DISORDER [None]
  - RASH GENERALISED [None]
  - STEVENS-JOHNSON SYNDROME [None]
